FAERS Safety Report 19369569 (Version 1)
Quarter: 2021Q2

REPORT INFORMATION
  Report Type: Spontaneous
  Country: FR (occurrence: FR)
  Receive Date: 20210602
  Receipt Date: 20210602
  Transmission Date: 20210717
  Serious: Yes (Other)
  Sender: FDA-Public Use
  Company Number: FR-ABBVIE-21K-056-3931297-00

PATIENT
  Age: 73 Year
  Sex: Female
  Weight: 61.2 kg

DRUGS (4)
  1. TRUXIMA [Suspect]
     Active Substance: RITUXIMAB-ABBS
     Indication: B-CELL LYMPHOMA
     Dosage: INFUSION EVERY 21 DAYS
     Route: 041
     Dates: start: 20210329, end: 20210329
  2. REVLIMID [Suspect]
     Active Substance: LENALIDOMIDE
     Indication: B-CELL LYMPHOMA
     Dosage: 20 MG ON MORNING, 21 DAYS/28
     Route: 048
     Dates: start: 20210330, end: 20210418
  3. IMBRUVICA [Suspect]
     Active Substance: IBRUTINIB
     Indication: B-CELL LYMPHOMA
     Route: 048
     Dates: start: 20210329, end: 20210421
  4. COVID?19 VACCINE NOS. [Suspect]
     Active Substance: COVID-19 VACCINE NOS
     Indication: COVID-19 IMMUNISATION
     Dosage: IN TOTAL
     Route: 030
     Dates: start: 20210419, end: 20210419

REACTIONS (1)
  - Hepatocellular injury [Recovering/Resolving]

NARRATIVE: CASE EVENT DATE: 20210420
